FAERS Safety Report 6981197-6 (Version None)
Quarter: 2010Q3

REPORT INFORMATION
  Report Type: 
  Country: None (occurrence: None)
  Receive Date: 20100914
  Receipt Date: 20100902
  Transmission Date: 20110219
  Serious: No
  Sender: FDA-Public Use
  Company Number: US-PFIZER INC-2010111938

PATIENT
  Sex: Male

DRUGS (3)
  1. LYRICA [Suspect]
     Indication: POST HERPETIC NEURALGIA
     Dosage: 50 MG, 3X/DAY
     Route: 048
     Dates: start: 20100826, end: 20100801
  2. LYRICA [Suspect]
     Dosage: 50MG FIVE TIMES A DAY
     Dates: start: 20100801, end: 20100801
  3. LYRICA [Suspect]
     Dosage: 100 MG, 2X/DAY
     Dates: start: 20100830

REACTIONS (1)
  - BURNING SENSATION [None]
